FAERS Safety Report 7667218-6 (Version None)
Quarter: 2011Q3

REPORT INFORMATION
  Report Type: 
  Country: None (occurrence: None)
  Receive Date: 20110806
  Receipt Date: 20110511
  Transmission Date: 20111222
  Serious: No
  Sender: FDA-Public Use
  Company Number: US-ABBOTT-11P-163-0725774-00

PATIENT
  Sex: Male
  Weight: 99.88 kg

DRUGS (5)
  1. MAGNESIUM [Concomitant]
     Indication: MINERAL SUPPLEMENTATION
  2. NIASPAN [Suspect]
     Indication: BLOOD CHOLESTEROL INCREASED
     Dates: start: 20110226, end: 20110430
  3. SIMVASTATIN [Concomitant]
     Indication: BLOOD CHOLESTEROL INCREASED
  4. METOPROLOL TARTRATE [Concomitant]
     Indication: HYPERTENSION
  5. PLAVIX [Concomitant]
     Indication: THROMBOSIS PROPHYLAXIS
     Dates: start: 20110226

REACTIONS (4)
  - DYSURIA [None]
  - PAIN IN EXTREMITY [None]
  - OEDEMA PERIPHERAL [None]
  - GOUT [None]
